FAERS Safety Report 12756546 (Version 1)
Quarter: 2016Q3

REPORT INFORMATION
  Report Type: Report from Study
  Country: DE (occurrence: DE)
  Receive Date: 20160917
  Receipt Date: 20160917
  Transmission Date: 20161109
  Serious: Yes (Hospitalization, Other)
  Sender: FDA-Public Use
  Company Number: DE-ABBVIE-15K-062-1432928-00

PATIENT
  Age: 46 Year
  Sex: Male

DRUGS (1)
  1. HUMIRA [Suspect]
     Active Substance: ADALIMUMAB
     Indication: CROHN^S DISEASE
     Route: 058
     Dates: start: 20150604, end: 201603

REACTIONS (2)
  - Fistula discharge [Recovering/Resolving]
  - Purulent discharge [Recovering/Resolving]

NARRATIVE: CASE EVENT DATE: 20150719
